FAERS Safety Report 20642620 (Version 1)
Quarter: 2022Q1

REPORT INFORMATION
  Report Type: Report from Study
  Country: DE (occurrence: DE)
  Receive Date: 20220328
  Receipt Date: 20220328
  Transmission Date: 20220423
  Serious: Yes (Hospitalization)
  Sender: FDA-Public Use
  Company Number: DE-ARGENX-2021-ARGX-DE004089

PATIENT
  Age: 53 Year
  Sex: Male
  Weight: 103 kg

DRUGS (2)
  1. EFGARTIGIMOD ALFA [Suspect]
     Active Substance: EFGARTIGIMOD ALFA
     Indication: Myasthenia gravis
     Dosage: 1030 MG
     Route: 017
     Dates: start: 20211217, end: 20211217
  2. AZATHIOPRINE [Concomitant]
     Active Substance: AZATHIOPRINE
     Indication: Myasthenia gravis
     Dosage: UNK
     Dates: start: 202107

REACTIONS (1)
  - Hypersensitivity [Recovered/Resolved]

NARRATIVE: CASE EVENT DATE: 20211217
